FAERS Safety Report 9907813 (Version 1)
Quarter: 2014Q1

REPORT INFORMATION
  Report Type: Spontaneous
  Country: US (occurrence: US)
  Receive Date: 20140219
  Receipt Date: 20140219
  Transmission Date: 20141002
  Serious: No
  Sender: FDA-Public Use
  Company Number: US-BIOGENIDEC-2014BI013783

PATIENT
  Age: 34 Year
  Sex: Male
  Weight: 90 kg

DRUGS (1)
  1. TECFIDERA [Suspect]
     Indication: MULTIPLE SCLEROSIS
     Route: 048
     Dates: start: 20130910, end: 20140110

REACTIONS (8)
  - Constipation [Unknown]
  - Faecal incontinence [Recovered/Resolved]
  - Weight decreased [Unknown]
  - Hyperphagia [Unknown]
  - Gastrointestinal motility disorder [Unknown]
  - Stress [Unknown]
  - Insomnia [Unknown]
  - Urinary incontinence [Recovered/Resolved]
